FAERS Safety Report 10440433 (Version 3)
Quarter: 2014Q4

REPORT INFORMATION
  Report Type: Report from Study
  Country: US (occurrence: US)
  Receive Date: 20140909
  Receipt Date: 20141027
  Transmission Date: 20150528
  Serious: Yes (Hospitalization)
  Sender: FDA-Public Use
  Company Number: US-BIOGENIDEC-2014BI089678

PATIENT
  Age: 58 Year
  Sex: Female

DRUGS (1)
  1. TYSABRI [Suspect]
     Active Substance: NATALIZUMAB
     Indication: MULTIPLE SCLEROSIS
     Route: 042
     Dates: start: 20130605, end: 20140731

REACTIONS (6)
  - Ovarian cyst [Unknown]
  - Uterine polyp [Unknown]
  - Endometriosis [Unknown]
  - Endometrial adenocarcinoma [Unknown]
  - Uterine leiomyoma [Unknown]
  - Cervical cyst [Unknown]

NARRATIVE: CASE EVENT DATE: 201408
